FAERS Safety Report 7385704-3 (Version None)
Quarter: 2011Q1

REPORT INFORMATION
  Report Type: 
  Country: None (occurrence: None)
  Receive Date: 20110322
  Receipt Date: 20110309
  Transmission Date: 20110831
  Serious: Yes (Hospitalization)
  Sender: FDA-Public Use
  Company Number: 2011SP011266

PATIENT
  Age: 31 Year
  Sex: Female
  Weight: 95 kg

DRUGS (3)
  1. LANSOPRAZOLE [Concomitant]
  2. NUVARING [Suspect]
     Indication: CONTRACEPTION
     Dosage: QM;VAG
     Route: 067
     Dates: start: 20110225
  3. LOMOTRIGINE [Concomitant]

REACTIONS (5)
  - POST PROCEDURAL COMPLICATION [None]
  - GASTRIC BYPASS [None]
  - POST PROCEDURAL OEDEMA [None]
  - METRORRHAGIA [None]
  - INFLAMMATION [None]
